FAERS Safety Report 6135559-X (Version None)
Quarter: 2009Q1

REPORT INFORMATION
  Report Type: 
  Country: None (occurrence: None)
  Receive Date: 20090327
  Receipt Date: 20090319
  Transmission Date: 20090719
  Serious: Yes (Other)
  Sender: FDA-Public Use
  Company Number: PHHY2009CA10536

PATIENT
  Sex: Female

DRUGS (2)
  1. DESFERAL [Suspect]
     Indication: IRON OVERLOAD
     Route: 058
  2. DESFERAL [Suspect]
     Indication: THALASSAEMIA

REACTIONS (2)
  - DEAFNESS [None]
  - SPEECH DISORDER [None]
